FAERS Safety Report 19769508 (Version 3)
Quarter: 2025Q3

REPORT INFORMATION
  Report Type: Spontaneous
  Country: EU (occurrence: EU)
  Receive Date: 20210831
  Receipt Date: 20250902
  Transmission Date: 20251021
  Serious: Yes (Other)
  Sender: MYLAN
  Company Number: EU-ARISTO PHARMA-CODE-GABA-MORP-PREG202103081

PATIENT
  Age: 34 Year
  Sex: Male

DRUGS (32)
  1. GABAPENTIN [Interacting]
     Active Substance: GABAPENTIN
     Indication: Product used for unknown indication
  2. GABAPENTIN [Interacting]
     Active Substance: GABAPENTIN
  3. GABAPENTIN [Interacting]
     Active Substance: GABAPENTIN
     Route: 065
  4. GABAPENTIN [Interacting]
     Active Substance: GABAPENTIN
     Route: 065
  5. GABAPENTIN [Interacting]
     Active Substance: GABAPENTIN
  6. GABAPENTIN [Interacting]
     Active Substance: GABAPENTIN
  7. GABAPENTIN [Interacting]
     Active Substance: GABAPENTIN
     Route: 065
  8. GABAPENTIN [Interacting]
     Active Substance: GABAPENTIN
     Route: 065
  9. PREGABALIN [Interacting]
     Active Substance: PREGABALIN
     Indication: Product used for unknown indication
  10. PREGABALIN [Interacting]
     Active Substance: PREGABALIN
     Route: 065
  11. PREGABALIN [Interacting]
     Active Substance: PREGABALIN
     Route: 065
  12. PREGABALIN [Interacting]
     Active Substance: PREGABALIN
  13. MORPHINE [Interacting]
     Active Substance: MORPHINE
     Indication: Product used for unknown indication
  14. MORPHINE [Interacting]
     Active Substance: MORPHINE
     Route: 065
  15. MORPHINE [Interacting]
     Active Substance: MORPHINE
     Route: 065
  16. MORPHINE [Interacting]
     Active Substance: MORPHINE
  17. COCAINE [Interacting]
     Active Substance: COCAINE
     Indication: Product used for unknown indication
  18. COCAINE [Interacting]
     Active Substance: COCAINE
     Route: 065
  19. COCAINE [Interacting]
     Active Substance: COCAINE
     Route: 065
  20. COCAINE [Interacting]
     Active Substance: COCAINE
  21. CODEINE [Interacting]
     Active Substance: CODEINE
     Indication: Product used for unknown indication
  22. CODEINE [Interacting]
     Active Substance: CODEINE
     Route: 065
  23. CODEINE [Interacting]
     Active Substance: CODEINE
     Route: 065
  24. CODEINE [Interacting]
     Active Substance: CODEINE
  25. MORPHINE SULFATE [Interacting]
     Active Substance: MORPHINE SULFATE
     Indication: Product used for unknown indication
  26. MORPHINE SULFATE [Interacting]
     Active Substance: MORPHINE SULFATE
     Route: 065
  27. MORPHINE SULFATE [Interacting]
     Active Substance: MORPHINE SULFATE
     Route: 065
  28. MORPHINE SULFATE [Interacting]
     Active Substance: MORPHINE SULFATE
  29. BENZOYLECGONINE [Interacting]
     Active Substance: BENZOYLECGONINE
     Indication: Product used for unknown indication
  30. BENZOYLECGONINE [Interacting]
     Active Substance: BENZOYLECGONINE
     Route: 065
  31. BENZOYLECGONINE [Interacting]
     Active Substance: BENZOYLECGONINE
     Route: 065
  32. BENZOYLECGONINE [Interacting]
     Active Substance: BENZOYLECGONINE

REACTIONS (4)
  - Drug dependence [Unknown]
  - Miosis [Unknown]
  - Drug interaction [Unknown]
  - Drug abuse [Unknown]
